FAERS Safety Report 7537937-0 (Version None)
Quarter: 2011Q2

REPORT INFORMATION
  Report Type: 
  Country: None (occurrence: None)
  Receive Date: 20110609
  Receipt Date: 20110607
  Transmission Date: 20111010
  Serious: Yes (Hospitalization)
  Sender: FDA-Public Use
  Company Number: JP-ABBOTT-11P-087-0725439-00

PATIENT
  Sex: Male
  Weight: 98 kg

DRUGS (7)
  1. DIFLUCORTOLONE VALERATE [Concomitant]
     Indication: PSORIASIS
     Dosage: QS
     Route: 061
  2. CALCIPOTRIOL [Concomitant]
     Indication: PSORIASIS
     Dosage: QS
     Route: 061
     Dates: start: 19890401
  3. BETAMETHASONE BUTYRATE PROPIONATE [Concomitant]
     Route: 061
  4. HUMIRA [Suspect]
     Route: 058
     Dates: start: 20110329, end: 20110426
  5. BETAMETHASONE BUTYRATE PROPIONATE [Concomitant]
     Indication: PSORIASIS
     Dosage: QS
     Route: 061
  6. HUMIRA [Suspect]
     Indication: PSORIASIS
     Route: 058
     Dates: start: 20110315, end: 20110315
  7. HEPARIN [Concomitant]
     Indication: PSORIASIS
     Dosage: QS
     Route: 061

REACTIONS (2)
  - PYREXIA [None]
  - PUSTULAR PSORIASIS [None]
